FAERS Safety Report 4968422-8 (Version None)
Quarter: 2006Q2

REPORT INFORMATION
  Report Type: 
  Country: None (occurrence: None)
  Receive Date: 20060410
  Receipt Date: 20051223
  Transmission Date: 20061013
  Serious: Yes (Death, Hospitalization)
  Sender: FDA-Public Use
  Company Number: US-MERCK-0512USA03784

PATIENT
  Age: 55 Year
  Sex: Male
  Weight: 95 kg

DRUGS (4)
  1. VIOXX [Suspect]
     Indication: RHEUMATOID ARTHRITIS
     Route: 048
     Dates: start: 19990401, end: 19991001
  2. VIOXX [Suspect]
     Route: 048
     Dates: start: 19990401, end: 19991001
  3. VIOXX [Suspect]
     Route: 048
     Dates: start: 19990401, end: 19991001
  4. VIOXX [Concomitant]
     Route: 048
     Dates: start: 19990401, end: 19991001

REACTIONS (10)
  - ATRIAL FIBRILLATION [None]
  - CLOSTRIDIUM COLITIS [None]
  - DIFFUSE VASCULITIS [None]
  - ENCEPHALITIS [None]
  - LIVEDO RETICULARIS [None]
  - MENTAL STATUS CHANGES [None]
  - MYOCARDIAL INFARCTION [None]
  - PETECHIAE [None]
  - PRESCRIBED OVERDOSE [None]
  - RENAL FAILURE ACUTE [None]
